FAERS Safety Report 6579135-3 (Version None)
Quarter: 2010Q1

REPORT INFORMATION
  Report Type: 
  Country: None (occurrence: None)
  Receive Date: 20100212
  Receipt Date: 20100208
  Transmission Date: 20100710
  Serious: Yes (Death, Other)
  Sender: FDA-Public Use
  Company Number: JP-BAYER-201010539BYL

PATIENT
  Age: 56 Year
  Sex: Male
  Weight: 53 kg

DRUGS (9)
  1. FLUDARA [Suspect]
     Indication: ADULT T-CELL LYMPHOMA/LEUKAEMIA
     Route: 042
     Dates: start: 20090101
  2. PROGRAF [Concomitant]
     Indication: IMMUNOSUPPRESSANT DRUG THERAPY
     Dosage: AS USED: 0.3-0.05 ML
     Route: 041
     Dates: start: 20091209
  3. NAUZELIN [Concomitant]
     Indication: PROPHYLAXIS OF NAUSEA AND VOMITING
     Dosage: AS USED: 10-30 MG
     Route: 048
     Dates: start: 20091216
  4. LOXONIN [Concomitant]
     Indication: PAIN
     Dosage: AS USED: 60-240 MG
     Route: 048
     Dates: start: 20091218, end: 20100105
  5. PENTAZOCINE LACTATE [Concomitant]
     Indication: PAIN
     Route: 042
     Dates: start: 20100107
  6. ATARAX [Concomitant]
     Indication: SEDATIVE THERAPY
     Route: 042
     Dates: start: 20100107
  7. SULPERAZON [Concomitant]
     Indication: INFECTION PROPHYLAXIS
     Route: 041
     Dates: start: 20100110, end: 20100112
  8. LEPETAN [Concomitant]
     Indication: PAIN
     Route: 042
     Dates: start: 20100111
  9. PREDNISOLONE [Concomitant]
     Indication: PROPHYLAXIS AGAINST GRAFT VERSUS HOST DISEASE
     Route: 048
     Dates: start: 20091228, end: 20100104

REACTIONS (3)
  - ACUTE GRAFT VERSUS HOST DISEASE IN INTESTINE [None]
  - CYTOMEGALOVIRUS VIRAEMIA [None]
  - THROMBOTIC MICROANGIOPATHY [None]
